FAERS Safety Report 8099282-7 (Version None)
Quarter: 2012Q1

REPORT INFORMATION
  Report Type: 
  Country: None (occurrence: None)
  Receive Date: 20120129
  Receipt Date: 20111018
  Transmission Date: 20120608
  Serious: No
  Sender: FDA-Public Use
  Company Number: US-ABBOTT-11P-163-0866825-00

PATIENT
  Sex: Male
  Weight: 83.99 kg

DRUGS (2)
  1. HUMIRA [Suspect]
     Indication: PSORIASIS
     Dates: start: 20110801
  2. IBUPROFEN PM [Concomitant]
     Indication: INSOMNIA

REACTIONS (3)
  - PERIPHERAL COLDNESS [None]
  - PALLOR [None]
  - HYPOAESTHESIA [None]
